FAERS Safety Report 9278704 (Version 1)
Quarter: 2013Q2

REPORT INFORMATION
  Report Type: Spontaneous
  Country: IT (occurrence: None)
  Receive Date: 20130503
  Receipt Date: 20130503
  Transmission Date: 20140414
  Serious: Yes (Other)
  Sender: FDA-Public Use
  Company Number: 1689630

PATIENT
  Age: 64 Year
  Sex: Female

DRUGS (5)
  1. CARBOPLATIN [Suspect]
     Indication: BREAST CANCER METASTATIC
     Dosage: 740 MG MILLIGRAM(S) ( CYCLICAL ), INTRAVENOUS (NOT OTHERWISE SPECIFIED)
     Route: 042
     Dates: start: 20130215, end: 20130329
  2. ONDANSETRON [Concomitant]
  3. ZANTAC [Concomitant]
  4. SOLDESAM [Concomitant]
  5. TRIMETON [Concomitant]

REACTIONS (3)
  - Dyspnoea [None]
  - Erythema [None]
  - Abdominal pain [None]
